FAERS Safety Report 12550944 (Version 1)
Quarter: 2016Q3

REPORT INFORMATION
  Report Type: Report from Study
  Country: US (occurrence: US)
  Receive Date: 20160712
  Receipt Date: 20160712
  Transmission Date: 20161109
  Serious: Yes (Other)
  Sender: FDA-Public Use
  Company Number: US-AMGEN-USASL2016054316

PATIENT
  Age: 84 Year
  Sex: Female

DRUGS (2)
  1. BENADRYL [Concomitant]
     Active Substance: DIPHENHYDRAMINE HYDROCHLORIDE
     Dosage: UNK
  2. KYPROLIS [Suspect]
     Active Substance: CARFILZOMIB
     Indication: PRODUCT USED FOR UNKNOWN INDICATION
     Dosage: 40 MG, 2 TIMES/WK
     Route: 065
     Dates: start: 20160406

REACTIONS (8)
  - Vomiting [Unknown]
  - Nausea [Unknown]
  - Bronchiectasis [Unknown]
  - Respiratory tract infection [Recovering/Resolving]
  - Diarrhoea [Unknown]
  - Pneumonitis [Recovered/Resolved]
  - Adverse drug reaction [Unknown]
  - Drug ineffective [Unknown]

NARRATIVE: CASE EVENT DATE: 2016
